FAERS Safety Report 10370220 (Version 1)
Quarter: 2014Q3

REPORT INFORMATION
  Report Type: Spontaneous
  Country: US (occurrence: None)
  Receive Date: 20140806
  Receipt Date: 20140806
  Transmission Date: 20150326
  Serious: No
  Sender: FDA-Public Use
  Company Number: None

PATIENT
  Age: 69 Year
  Sex: Female

DRUGS (1)
  1. VELCADE [Suspect]
     Active Substance: BORTEZOMIB
     Indication: PLASMA CELL MYELOMA
     Dates: start: 20100101, end: 20131001

REACTIONS (5)
  - Paraesthesia [None]
  - Gait disturbance [None]
  - Herpes zoster [None]
  - Weight decreased [None]
  - Decreased appetite [None]
